FAERS Safety Report 8604520-5 (Version None)
Quarter: 2012Q3

REPORT INFORMATION
  Report Type: 
  Country: None (occurrence: None)
  Receive Date: 20120806
  Receipt Date: 20120806
  Transmission Date: 20120928
  Serious: No
  Sender: FDA-Public Use
  Company Number: None

PATIENT
  Age: 72 Year
  Sex: Female

DRUGS (1)
  1. FORTEO [Suspect]
     Dosage: 20 MCG DAILY SUBCUTANEOUS
     Route: 058
     Dates: start: 20120130, end: 20120801

REACTIONS (2)
  - ASTHENIA [None]
  - DYSPNOEA [None]
